FAERS Safety Report 9366704 (Version 2)
Quarter: 2013Q2

REPORT INFORMATION
  Report Type: Spontaneous
  Country: IN (occurrence: None)
  Receive Date: 20130620
  Receipt Date: 20130626
  Transmission Date: 20140414
  Serious: Yes (Other)
  Sender: FDA-Public Use
  Company Number: AUR-APL-2013-05033

PATIENT
  Age: 2 Year
  Sex: Male
  Weight: 27.8 kg

DRUGS (10)
  1. DIDANOSINE [Suspect]
     Indication: HIV INFECTION
  2. EMTRICITABINE [Suspect]
     Indication: HIV INFECTION
  3. LAMIVUDINE [Suspect]
     Indication: HIV INFECTION
     Dosage: 80 MG IN TWO DIVIDED DOSES
     Dates: start: 200106
  4. LOPINAVIR+RITONAVIR [Suspect]
     Indication: HIV INFECTION
     Dosage: 600 MG (300 MG, 2 IN 1 D)
  5. NELFINAVIR [Suspect]
     Indication: HIV INFECTION
     Dosage: 1250 MG IN 3 DIVIDED DOSES
  6. NEVIRAPINE [Suspect]
     Indication: HIV INFECTION
     Dosage: 150 MG IN  IN TWO DIVIDED DOSES
  7. STAVUDINE [Suspect]
     Indication: HIV INFECTION
     Dosage: 30 MG IN TWO DIVIDED DOSES
  8. TENOFOVIR [Suspect]
     Indication: HIV INFECTION
     Dosage: (225 MG, 1 IN 1 D)
  9. ZIDOVUDINE (ZIDOVUDINE) [Suspect]
     Indication: HIV INFECTION
     Dosage: 180 MG IN TWO DIVIDED DOSES
     Dates: start: 201106
  10. LOPINAVIR (LOPINAVIR) [Suspect]
     Dosage: 600 MG (300 MG, 2 IN 1 D)

REACTIONS (1)
  - Treatment failure [None]
